FAERS Safety Report 23127716 (Version 1)
Quarter: 2023Q4

REPORT INFORMATION
  Report Type: Spontaneous
  Country: US (occurrence: US)
  Receive Date: 20231031
  Receipt Date: 20231031
  Transmission Date: 20240109
  Serious: Yes (Hospitalization)
  Sender: FDA-Public Use
  Company Number: US-LEO Pharma-364426

PATIENT
  Age: 52 Year
  Sex: Male

DRUGS (2)
  1. ADBRY [Suspect]
     Active Substance: TRALOKINUMAB-LDRM
     Indication: Psoriasis
     Dosage: DOSE OR AMOUNT/FREQUENCY: INJECT 4 SYRINGES UNDER THE SKIN ON DAY 1
     Route: 058
     Dates: start: 202309
  2. ADBRY [Suspect]
     Active Substance: TRALOKINUMAB-LDRM
     Indication: Psoriasis
     Dosage: THEN START MAINTENANCE DOSING AS DIRECTED ON DAY 15.?TREATMENT IS ONGOING

REACTIONS (2)
  - Off label use [Unknown]
  - Hospitalisation [Unknown]
